FAERS Safety Report 8009578-2 (Version None)
Quarter: 2011Q4

REPORT INFORMATION
  Report Type: 
  Country: None (occurrence: None)
  Receive Date: 20111228
  Receipt Date: 20111220
  Transmission Date: 20120403
  Serious: Yes (Hospitalization)
  Sender: FDA-Public Use
  Company Number: DE-BRISTOL-MYERS SQUIBB COMPANY-16306375

PATIENT
  Age: 27 Year
  Sex: Female

DRUGS (8)
  1. CYCLOPHOSPHAMIDE [Suspect]
     Indication: HODGKIN'S DISEASE
     Dosage: LAST DOSE 6SEP11 CYCLES 8
     Route: 042
     Dates: start: 20110101
  2. DOXORUBICIN HCL [Suspect]
     Indication: HODGKIN'S DISEASE
     Dosage: LAST DOSE 6SEP11 CYCLES 8
     Route: 042
     Dates: start: 20110101
  3. BLEOMYCIN SULFATE [Suspect]
     Indication: HODGKIN'S DISEASE
     Dosage: LAST DOSE 13SEP11 CYCLES 8
     Route: 042
     Dates: start: 20110101
  4. ETOPOSIDE [Suspect]
     Indication: HODGKIN'S DISEASE
     Dosage: LAST DOSE 8SEP11 CYCLES 8
     Route: 042
     Dates: start: 20110101
  5. COTRIM DS [Concomitant]
     Dosage: ON MON,WED,FR REPORTED AS 1DF FOR 3WKS
     Dates: start: 20110412, end: 20110921
  6. PROCARBAZINE HYDROCHLORIDE [Suspect]
     Indication: HODGKIN'S DISEASE
     Dosage: LAST DOSE 12SEP11 CYCLES 8
     Route: 048
     Dates: start: 20110101
  7. RITUXIMAB [Suspect]
     Indication: HODGKIN'S DISEASE
     Dosage: LAST DOSE 5SEP11 ON DAY 1 375 MG/M2 CYCLES 5-8
     Route: 042
     Dates: start: 20110101
  8. PREDNISONE TAB [Suspect]
     Indication: HODGKIN'S DISEASE
     Dosage: LAST DOSE 19SEP11 CYCLES 8
     Route: 048
     Dates: start: 20110101

REACTIONS (1)
  - SUPRAVENTRICULAR TACHYCARDIA [None]
